FAERS Safety Report 8654747 (Version 2)
Quarter: 2012Q4

REPORT INFORMATION
  Report Type: 
  Country: MX (occurrence: MX)
  Receive Date: 20120709
  Receipt Date: 20121022
  Transmission Date: 20130627
  Serious: Yes (Death, Other)
  Sender: FDA-Public Use
  Company Number: PHHY2012MX057681

PATIENT
  Sex: Male

DRUGS (2)
  1. ONBREZ [Suspect]
     Indication: CHRONIC OBSTRUCTIVE PULMONARY DISEASE
     Dosage: 150 ug, daily
     Dates: start: 201204
  2. THEOPHYLLINE [Concomitant]
     Dosage: 2 DF, daily
     Dates: start: 2009

REACTIONS (2)
  - Death [Fatal]
  - Malaise [Not Recovered/Not Resolved]
